FAERS Safety Report 13545004 (Version 3)
Quarter: 2017Q4

REPORT INFORMATION
  Report Type: Report from Study
  Country: None (occurrence: GB)
  Receive Date: 20170515
  Receipt Date: 20171106
  Transmission Date: 20180320
  Serious: Yes (Other)
  Sender: FDA-Public Use
  Company Number: GB-ABBVIE-17K-167-1973344-00

PATIENT
  Sex: Male

DRUGS (1)
  1. HUMIRA [Suspect]
     Active Substance: ADALIMUMAB
     Indication: PSORIASIS
     Route: 058

REACTIONS (7)
  - Glossitis [Unknown]
  - Oral fungal infection [Unknown]
  - Non-alcoholic steatohepatitis [Unknown]
  - Diabetes mellitus [Unknown]
  - Glossodynia [Unknown]
  - Cardiac pacemaker insertion [Unknown]
  - Oral bacterial infection [Unknown]
